FAERS Safety Report 19031054 (Version 2)
Quarter: 2021Q1

REPORT INFORMATION
  Report Type: Report from Study
  Country: IT (occurrence: IT)
  Receive Date: 20210319
  Receipt Date: 20210324
  Transmission Date: 20210420
  Serious: Yes (Death, Hospitalization)
  Sender: FDA-Public Use
  Company Number: IT-TAKEDA-SPV1-2009-01827

PATIENT
  Age: 28 Year
  Sex: Male

DRUGS (8)
  1. FOLINA                             /00024201/ [Concomitant]
     Active Substance: FOLIC ACID
     Dosage: 1 DF, 1X/DAY:QD
     Dates: start: 200611
  2. CITALOPRAM [Concomitant]
     Active Substance: CITALOPRAM HYDROBROMIDE
     Indication: PANIC ATTACK
     Dosage: 7 GTT, 1X/DAY:QD
     Dates: start: 200805
  3. AMIODARONE [Concomitant]
     Active Substance: AMIODARONE
     Dosage: 400 MG, 1X/WEEK
     Dates: start: 200705
  4. WARFARIN [Concomitant]
     Active Substance: WARFARIN
     Dosage: UNK, UNK
     Dates: start: 1994
  5. IDURSULFASE [Suspect]
     Active Substance: IDURSULFASE
     Indication: MUCOPOLYSACCHARIDOSIS II
     Dosage: .5 MG/KG, UNK
     Route: 041
     Dates: start: 20061215, end: 20070828
  6. IDURSULFASE [Suspect]
     Active Substance: IDURSULFASE
     Dosage: 0.5 MILLIGRAM/KILOGRAM, 1/WEEK
     Route: 042
     Dates: start: 20080420
  7. ANTIDEPRESSANTS [Concomitant]
     Active Substance: UNSPECIFIED INGREDIENT
     Dosage: 10 GTT, 1X/DAY:QD
     Dates: start: 20060201
  8. IDURSULFASE [Suspect]
     Active Substance: IDURSULFASE
     Dosage: 0.5 MILLIGRAM/KILOGRAM, 1/WEEK
     Route: 042
     Dates: start: 20071019, end: 20080314

REACTIONS (3)
  - COVID-19 [Fatal]
  - Motor dysfunction [Unknown]
  - Ischaemic stroke [Recovered/Resolved with Sequelae]

NARRATIVE: CASE EVENT DATE: 200908
